FAERS Safety Report 6052795-1 (Version None)
Quarter: 2009Q1

REPORT INFORMATION
  Report Type: 
  Country: None (occurrence: None)
  Receive Date: 20090127
  Receipt Date: 20090120
  Transmission Date: 20090719
  Serious: Yes (Hospitalization, Other)
  Sender: FDA-Public Use
  Company Number: CA-AVENTIS-200910747GDDC

PATIENT
  Age: 55 Year
  Sex: Male

DRUGS (9)
  1. INSULIN GLARGINE [Suspect]
     Indication: DIABETES MELLITUS
     Route: 058
     Dates: start: 20031103
  2. OPTIPEN (INSULIN PUMP) [Suspect]
     Indication: DIABETES MELLITUS
  3. CODE UNBROKEN [Suspect]
     Dosage: DOSE: 1 CAP
     Route: 048
     Dates: start: 20040223
  4. RAMIPRIL [Concomitant]
     Dates: start: 20040301
  5. HYDROCHLOROTHIAZIDE [Concomitant]
     Dates: start: 20040301
  6. ACETYLSALICYLIC ACID SRT [Concomitant]
     Dates: start: 20030701
  7. INSULIN GLULISIN [Concomitant]
     Dates: start: 20090101
  8. SIMVASTATIN [Concomitant]
     Dates: start: 20050501
  9. METOPROLOL TARTRATE [Concomitant]
     Dates: start: 20001101

REACTIONS (3)
  - FATIGUE [None]
  - PANCREATIC NEOPLASM [None]
  - WEIGHT DECREASED [None]
